FAERS Safety Report 6678021-8 (Version None)
Quarter: 2010Q2

REPORT INFORMATION
  Report Type: 
  Country: None (occurrence: None)
  Receive Date: 20100412
  Receipt Date: 20100309
  Transmission Date: 20101027
  Serious: No
  Sender: FDA-Public Use
  Company Number: US-BAYER-201013031BCC

PATIENT
  Age: 59 Year
  Sex: Male
  Weight: 108 kg

DRUGS (4)
  1. ALEVE (CAPLET) [Suspect]
     Indication: MYALGIA
     Dosage: TOTAL DAILY DOSE: 220 MG  UNIT DOSE: 220 MG
     Route: 048
     Dates: start: 20100302, end: 20100306
  2. RAMIPRIL [Concomitant]
     Route: 065
  3. LIPITOR [Concomitant]
     Route: 065
  4. AGGRENOX [Concomitant]
     Route: 065

REACTIONS (1)
  - IRRITABILITY [None]
